FAERS Safety Report 6595950-4 (Version None)
Quarter: 2010Q1

REPORT INFORMATION
  Report Type: 
  Country: None (occurrence: None)
  Receive Date: 20100223
  Receipt Date: 20100209
  Transmission Date: 20100710
  Serious: Yes (Hospitalization, Other)
  Sender: FDA-Public Use
  Company Number: PHHY2009TW47498

PATIENT
  Sex: Male
  Weight: 41.5 kg

DRUGS (5)
  1. ICL670A ICL+DISTAB [Suspect]
     Indication: THALASSAEMIA
     Dosage: 1250 MG/DAY
     Route: 048
     Dates: start: 20090320
  2. BLOOD TRANSFUSION, AUXILIARY PRODUCTS [Concomitant]
  3. LEVOTHYROXINE SODIUM [Concomitant]
     Indication: HYPOTHYROIDISM
     Dosage: 0.025 MG
     Route: 048
  4. TESTOSTERONE [Concomitant]
     Indication: HYPOPITUITARISM
     Dosage: 200 MG, QMO
     Route: 030
  5. CALCITRIOL [Concomitant]
     Indication: HYPOPITUITARISM
     Dosage: 0.25 MG, UNK
     Route: 048

REACTIONS (35)
  - ACUTE HEPATIC FAILURE [None]
  - ALANINE AMINOTRANSFERASE INCREASED [None]
  - ALTERED STATE OF CONSCIOUSNESS [None]
  - AMMONIA INCREASED [None]
  - ASPARTATE AMINOTRANSFERASE INCREASED [None]
  - BILIRUBIN CONJUGATED INCREASED [None]
  - BLOOD BILIRUBIN INCREASED [None]
  - BLOOD GLUCOSE FLUCTUATION [None]
  - BLOOD UREA INCREASED [None]
  - BRAIN OEDEMA [None]
  - CHOLESTASIS [None]
  - COAGULOPATHY [None]
  - DECREASED APPETITE [None]
  - DIARRHOEA [None]
  - DISCOMFORT [None]
  - DYSPNOEA EXERTIONAL [None]
  - ELECTROLYTE IMBALANCE [None]
  - FANCONI SYNDROME ACQUIRED [None]
  - FATIGUE [None]
  - HAEMOGLOBIN DECREASED [None]
  - HEPATIC ENCEPHALOPATHY [None]
  - HEPATIC ENZYME INCREASED [None]
  - HYPERGLYCAEMIA [None]
  - HYPERSOMNIA [None]
  - HYPOGLYCAEMIA [None]
  - INTERNATIONAL NORMALISED RATIO INCREASED [None]
  - LETHARGY [None]
  - LIVER FUNCTION TEST ABNORMAL [None]
  - METABOLIC ACIDOSIS [None]
  - PYREXIA [None]
  - REYE'S SYNDROME [None]
  - SERUM FERRITIN INCREASED [None]
  - TACHYCARDIA [None]
  - TACHYPNOEA [None]
  - VOMITING [None]
